FAERS Safety Report 16923298 (Version 2)
Quarter: 2019Q4

REPORT INFORMATION
  Report Type: Other
  Country: DE (occurrence: DE)
  Receive Date: 20191016
  Receipt Date: 20191223
  Transmission Date: 20200122
  Serious: Yes (Hospitalization, Other)
  Sender: FDA-Public Use
  Company Number: DE-LUPIN PHARMACEUTICALS INC.-2019-06496

PATIENT
  Age: 71 Year
  Sex: Female
  Weight: 97 kg

DRUGS (2)
  1. SIMVASTATIN. [Suspect]
     Active Substance: SIMVASTATIN
     Indication: HYPERLIPIDAEMIA
     Dosage: UNK
     Route: 048
  2. ATORVASTATIN [Suspect]
     Active Substance: ATORVASTATIN
     Indication: HYPERLIPIDAEMIA
     Dosage: 40 MILLIGRAM
     Route: 048
     Dates: start: 201512, end: 201908

REACTIONS (2)
  - Quadriplegia [Not Recovered/Not Resolved]
  - Immune-mediated myositis [Not Recovered/Not Resolved]

NARRATIVE: CASE EVENT DATE: 201901
